FAERS Safety Report 22191293 (Version 5)
Quarter: 2025Q2

REPORT INFORMATION
  Report Type: Report from Study
  Country: US (occurrence: US)
  Receive Date: 20230410
  Receipt Date: 20250402
  Transmission Date: 20250717
  Serious: Yes (Other)
  Sender: TAKEDA
  Company Number: US-TAKEDA-2023TUS036109

PATIENT
  Age: 39 Year
  Sex: Male
  Weight: 70.3 kg

DRUGS (17)
  1. HUMAN IMMUNOGLOBULIN G [Suspect]
     Active Substance: HUMAN IMMUNOGLOBULIN G
     Indication: Immunodeficiency
     Dosage: 60 GRAM, Q4WEEKS
     Dates: start: 20230323
  2. DOXYCYCLINE HYCLATE [Concomitant]
     Active Substance: DOXYCYCLINE HYCLATE
  3. FLUTICASONE PROPIONATE [Concomitant]
     Active Substance: FLUTICASONE PROPIONATE
  4. IBUPROFEN [Concomitant]
     Active Substance: IBUPROFEN
  5. OMEPRAZOLE [Concomitant]
     Active Substance: OMEPRAZOLE
  6. ZOLPIDEM TARTRATE [Concomitant]
     Active Substance: ZOLPIDEM TARTRATE
  7. TRIAMCINOLONE ACETONIDE [Concomitant]
     Active Substance: TRIAMCINOLONE ACETONIDE
  8. ALPRAZOLAM [Concomitant]
     Active Substance: ALPRAZOLAM
  9. Alprazolam hcs [Concomitant]
  10. ESCITALOPRAM OXALATE [Concomitant]
     Active Substance: ESCITALOPRAM OXALATE
  11. SERTRALINE HYDROCHLORIDE [Concomitant]
     Active Substance: SERTRALINE HYDROCHLORIDE
  12. HYDROCORTISONE [Concomitant]
     Active Substance: HYDROCORTISONE
  13. SYMBICORT [Concomitant]
     Active Substance: BUDESONIDE\FORMOTEROL FUMARATE DIHYDRATE
  14. DUPIXENT [Concomitant]
     Active Substance: DUPILUMAB
  15. XANAX [Concomitant]
     Active Substance: ALPRAZOLAM
  16. CELECOXIB [Concomitant]
     Active Substance: CELECOXIB
  17. SERTRALINE [Concomitant]
     Active Substance: SERTRALINE HYDROCHLORIDE

REACTIONS (7)
  - Pneumonia [Unknown]
  - Product distribution issue [Unknown]
  - Illness [Unknown]
  - Weight fluctuation [Unknown]
  - Death of relative [Unknown]
  - Inappropriate schedule of product administration [Unknown]
  - Product dose omission issue [Unknown]

NARRATIVE: CASE EVENT DATE: 20240116
